FAERS Safety Report 7724050-2 (Version None)
Quarter: 2011Q3

REPORT INFORMATION
  Report Type: 
  Country: None (occurrence: None)
  Receive Date: 20110901
  Receipt Date: 20110824
  Transmission Date: 20111222
  Serious: Yes (Death)
  Sender: FDA-Public Use
  Company Number: DE-ACTELION-A-CH2011-50667

PATIENT
  Sex: Male

DRUGS (2)
  1. ANTIEPILEPTICS [Concomitant]
  2. ZAVESCA [Suspect]
     Indication: NIEMANN-PICK DISEASE
     Dosage: 50 MG, TID
     Route: 048

REACTIONS (2)
  - RESPIRATORY FAILURE [None]
  - NIEMANN-PICK DISEASE [None]
